FAERS Safety Report 8968144 (Version 1)
Quarter: 2012Q4

REPORT INFORMATION
  Report Type: Spontaneous
  Country: US (occurrence: None)
  Receive Date: 20121214
  Receipt Date: 20121214
  Transmission Date: 20130627
  Serious: Yes (Disabling)
  Sender: FDA-Public Use
  Company Number: None

PATIENT
  Age: 59 Year
  Sex: Female
  Weight: 67.13 kg

DRUGS (6)
  1. ARESTIN [Suspect]
     Indication: TRAUMA
     Dosage: 10 sites 1 time Dental ;
     Route: 048
     Dates: start: 20120406, end: 20120806
  2. ARESTIN [Suspect]
     Indication: TRAUMA
     Dosage: 10 sites 1 time Dental ;
     Route: 048
     Dates: start: 20120406, end: 20120806
  3. ARESTIN [Suspect]
     Indication: INFECTION
     Dosage: 10 sites 1 time Dental ;
     Route: 048
     Dates: start: 20120406, end: 20120806
  4. ARESTIN [Suspect]
     Indication: TRAUMA
     Dosage: 15 sites 1 time Dental
     Route: 048
     Dates: start: 20120430, end: 20120806
  5. ARESTIN [Suspect]
     Indication: TRAUMA
     Dosage: 15 sites 1 time Dental
     Route: 048
     Dates: start: 20120430, end: 20120806
  6. ARESTIN [Suspect]
     Indication: INFECTION
     Dosage: 15 sites 1 time Dental
     Route: 048
     Dates: start: 20120430, end: 20120806

REACTIONS (4)
  - Tongue discolouration [None]
  - Tongue disorder [None]
  - Oral fungal infection [None]
  - Immune system disorder [None]
